FAERS Safety Report 10420148 (Version 1)
Quarter: 2014Q3

REPORT INFORMATION
  Report Type: Spontaneous
  Country: US (occurrence: None)
  Receive Date: 20140701
  Receipt Date: 20140701
  Transmission Date: 20150326
  Serious: No
  Sender: FDA-Public Use
  Company Number: 1000067757

PATIENT
  Age: 46 Year
  Sex: Female

DRUGS (6)
  1. MIRALAX (PLYETHYLENE GLYCOL) [Concomitant]
  2. LIBRAX (CHLORDIAZEPOXIDE, CLIDINIUM) [Concomitant]
  3. BUSPAR (BUSPIRONE HYDROCHLORIDE) [Concomitant]
  4. LINZESS [Suspect]
     Active Substance: LINACLOTIDE
     Indication: IRRITABLE BOWEL SYNDROME
     Route: 048
     Dates: start: 201404, end: 201404
  5. BENYL (DICYCLOVERINE HYDROCHLORIDE) [Concomitant]
  6. STOOL SOFTNER (DOCUSATE SODIUM) [Concomitant]

REACTIONS (3)
  - Dehydration [None]
  - Diarrhoea [None]
  - Abdominal pain [None]

NARRATIVE: CASE EVENT DATE: 2014
